FAERS Safety Report 9812361 (Version 1)
Quarter: 2014Q1

REPORT INFORMATION
  Report Type: Spontaneous
  Country: IT (occurrence: IT)
  Receive Date: 20140113
  Receipt Date: 20140113
  Transmission Date: 20141002
  Serious: Yes (Other)
  Sender: FDA-Public Use
  Company Number: IT-ROCHE-1331481

PATIENT
  Age: 67 Year
  Sex: Male

DRUGS (3)
  1. CLONAZEPAM [Suspect]
     Indication: TERMINAL INSOMNIA
     Route: 048
     Dates: start: 20130710, end: 20130710
  2. DELORAZEPAM [Suspect]
     Indication: ANXIETY
     Route: 048
     Dates: start: 20130710, end: 20130710
  3. LORMETAZEPAM [Suspect]
     Indication: INSOMNIA
     Route: 048
     Dates: start: 20130710, end: 20130710

REACTIONS (2)
  - Delusion [Recovered/Resolved]
  - Hepatic encephalopathy [Recovered/Resolved]
